FAERS Safety Report 20625033 (Version 1)
Quarter: 2022Q1

REPORT INFORMATION
  Report Type: Spontaneous
  Country: JP (occurrence: JP)
  Receive Date: 20220323
  Receipt Date: 20220323
  Transmission Date: 20220423
  Serious: Yes (Other)
  Sender: FDA-Public Use
  Company Number: JP-SA-2022SA087959

PATIENT
  Age: 57 Year
  Sex: Male

DRUGS (3)
  1. TAXOTERE [Suspect]
     Active Substance: DOCETAXEL
     Indication: Nasal sinus cancer
     Dosage: 60 MG/M2
     Route: 041
  2. CARBOPLATIN [Concomitant]
     Active Substance: CARBOPLATIN
     Indication: Nasal sinus cancer
     Dosage: 60 MG/M2
     Route: 065
  3. TS-1 [Concomitant]
     Active Substance: GIMERACIL\OTERACIL\TEGAFUR
     Indication: Nasal sinus cancer
     Dosage: 20 MG/BODY
     Route: 065

REACTIONS (7)
  - Shock haemorrhagic [Unknown]
  - Liver abscess [Unknown]
  - Amoebic colitis [Unknown]
  - Abdominal pain [Unknown]
  - Melaena [Unknown]
  - Febrile neutropenia [Unknown]
  - Septic shock [Unknown]
